FAERS Safety Report 24427718 (Version 2)
Quarter: 2024Q4

REPORT INFORMATION
  Report Type: Spontaneous
  Country: IE (occurrence: IE)
  Receive Date: 20241011
  Receipt Date: 20241122
  Transmission Date: 20250115
  Serious: Yes (Hospitalization)
  Sender: BAYER HEALTHCARE PHARMACEUTICALS INC.
  Company Number: IE-BAYER-2024A140431

PATIENT
  Age: 47 Year
  Sex: Female

DRUGS (3)
  1. MIRENA [Suspect]
     Active Substance: LEVONORGESTREL
     Indication: Heavy menstrual bleeding
     Dosage: 20?G/DAY
     Route: 015
     Dates: start: 20240906, end: 20240912
  2. MIRENA [Suspect]
     Active Substance: LEVONORGESTREL
     Indication: Intermenstrual bleeding
  3. LEXAPRO [Concomitant]
     Active Substance: ESCITALOPRAM OXALATE

REACTIONS (8)
  - Pelvic infection [Recovering/Resolving]
  - Enterocolitis infectious [None]
  - Pelvic inflammatory disease [None]
  - Abdominal pain lower [None]
  - Pelvic pain [None]
  - Vaginal haemorrhage [None]
  - Vaginal discharge [None]
  - Chills [None]

NARRATIVE: CASE EVENT DATE: 20240901
